FAERS Safety Report 8100981-9 (Version None)
Quarter: 2012Q1

REPORT INFORMATION
  Report Type: 
  Country: None (occurrence: None)
  Receive Date: 20120129
  Receipt Date: 20111123
  Transmission Date: 20120608
  Serious: No
  Sender: FDA-Public Use
  Company Number: US-ABBOTT-11P-163-0877126-00

PATIENT
  Sex: Male
  Weight: 88.53 kg

DRUGS (4)
  1. HUMIRA [Suspect]
     Dates: start: 20100602
  2. IBUPROFEN [Concomitant]
     Indication: MYALGIA
  3. ACETAMINOPHEN [Concomitant]
     Indication: MYALGIA
  4. HUMIRA [Suspect]
     Indication: PSORIASIS
     Dates: start: 20100526, end: 20100526

REACTIONS (2)
  - ASPARTATE AMINOTRANSFERASE INCREASED [None]
  - ALANINE AMINOTRANSFERASE INCREASED [None]
